FAERS Safety Report 22709086 (Version 4)
Quarter: 2024Q4

REPORT INFORMATION
  Report Type: Spontaneous
  Country: JP (occurrence: JP)
  Receive Date: 20230717
  Receipt Date: 20241018
  Transmission Date: 20250114
  Serious: Yes (Other)
  Sender: PAREXEL
  Company Number: JP-NOVEN PHARMACEUTICALS, INC.-2023-NOV-JP000747

PATIENT
  Age: 44 Year
  Sex: Female

DRUGS (2)
  1. ESTRADIOL [Suspect]
     Active Substance: ESTRADIOL
     Indication: Menopausal symptoms
     Dosage: 0.72 MG, ONCE IN 2 DAYS
     Route: 062
     Dates: start: 202211
  2. ESTRADIOL [Suspect]
     Active Substance: ESTRADIOL
     Dosage: 0.72 MG, ONCE IN 2 DAYS
     Route: 062
     Dates: start: 201805, end: 202011

REACTIONS (2)
  - Neoplasm recurrence [Recovered/Resolved]
  - Uterine cancer [Recovered/Resolved]
